FAERS Safety Report 5821751-8 (Version None)
Quarter: 2008Q3

REPORT INFORMATION
  Report Type: 
  Country: None (occurrence: None)
  Receive Date: 20080724
  Receipt Date: 20080723
  Transmission Date: 20090109
  Serious: Yes (Hospitalization)
  Sender: FDA-Public Use
  Company Number: PHHO2003US10100

PATIENT
  Sex: Male
  Weight: 67 kg

DRUGS (5)
  1. DIOVAN [Suspect]
     Dosage: 80 MG, QD
     Route: 048
     Dates: start: 19990907, end: 20030721
  2. CERTICAN [Suspect]
     Indication: RENAL TRANSPLANT
     Dosage: 1.5 MG, BID
     Route: 048
     Dates: start: 19990108
  3. CERTICAN [Suspect]
     Indication: RENAL TRANSPLANT
     Dosage: 2 MG, BID
     Route: 048
     Dates: end: 20030721
  4. CERTICAN [Suspect]
     Dosage: 2 MG, BID
     Route: 048
     Dates: start: 20030805
  5. LIPITOR [Suspect]
     Dosage: 20 MG, QD
     Route: 048
     Dates: start: 20000504, end: 20030721

REACTIONS (4)
  - BLOOD CREATININE INCREASED [None]
  - DRUG TOXICITY [None]
  - FLANK PAIN [None]
  - HEPATIC ENZYME INCREASED [None]
